FAERS Safety Report 4620055-9 (Version None)
Quarter: 2005Q1

REPORT INFORMATION
  Report Type: 
  Country: None (occurrence: None)
  Receive Date: 20050328
  Receipt Date: 20050322
  Transmission Date: 20050727
  Serious: Yes (Other)
  Sender: FDA-Public Use
  Company Number: US-JNJFOC-20041202979

PATIENT
  Sex: Female
  Weight: 73.94 kg

DRUGS (7)
  1. TOPAMAX [Suspect]
     Indication: MIGRAINE
     Route: 049
     Dates: start: 20041024, end: 20041209
  2. EFFEXOR [Concomitant]
     Indication: DEPRESSION
     Route: 049
     Dates: start: 20040224
  3. BEXTRA [Concomitant]
     Indication: MIGRAINE
     Route: 049
  4. BEXTRA [Concomitant]
     Indication: BACK PAIN
     Dosage: EXPOSURE TIME IN GESTATIONAL WEEKS- 4WEEKS
     Route: 049
  5. VENTOLIN MDI [Concomitant]
     Indication: ASTHMA
     Dosage: 2 PUFFS AS NEEDED. EXPOSURE TIME IN GESTATIONAL WEEKS LESS THAN OR EQUAL TO 4 WEEKS.
     Route: 055
  6. TYLENOL W/ CODEINE NO. 4 [Concomitant]
     Indication: TOOTH ABSCESS
     Route: 049
  7. TYLENOL W/ CODEINE NO. 4 [Concomitant]
     Indication: PAIN
     Dosage: EVERY 4-6 HOURS. EXPOSURE TIME IN GESTATIONAL WEEKS- 2 DAYS
     Route: 049

REACTIONS (2)
  - ABORTION SPONTANEOUS [None]
  - DRUG EXPOSURE DURING PREGNANCY [None]
